FAERS Safety Report 9312362 (Version 1)
Quarter: 2013Q2

REPORT INFORMATION
  Report Type: Spontaneous
  Country: GB (occurrence: GB)
  Receive Date: 20130528
  Receipt Date: 20130528
  Transmission Date: 20140414
  Serious: Yes (Other)
  Sender: FDA-Public Use
  Company Number: GB-TEVA-407918ISR

PATIENT
  Sex: Female

DRUGS (3)
  1. WARFARIN [Suspect]
  2. FUROSEMIDE [Suspect]
  3. CO-CODAMOL [Suspect]
     Dosage: CO-CODAMOL 8/500MG CAPSULES

REACTIONS (1)
  - Feeling abnormal [Unknown]
